FAERS Safety Report 21117376 (Version 1)
Quarter: 2022Q3

REPORT INFORMATION
  Report Type: Report from Study
  Country: NG (occurrence: NG)
  Receive Date: 20220722
  Receipt Date: 20220722
  Transmission Date: 20221026
  Serious: Yes (Other)
  Sender: FDA-Public Use
  Company Number: NG-NOVARTISPH-NVSC2022NG164486

PATIENT

DRUGS (1)
  1. COARTEM [Suspect]
     Active Substance: ARTEMETHER\LUMEFANTRINE
     Indication: Product used for unknown indication
     Dosage: 3 DOSAGE FORM, BID (FOR 3 DAYS)
     Route: 065

REACTIONS (1)
  - Malaria [Recovered/Resolved]
